FAERS Safety Report 18437310 (Version 1)
Quarter: 2020Q4

REPORT INFORMATION
  Report Type: Report from Study
  Country: US (occurrence: US)
  Receive Date: 20201028
  Receipt Date: 20201028
  Transmission Date: 20210114
  Serious: Yes (Hospitalization, Other)
  Sender: FDA-Public Use
  Company Number: US-SHIRE-US202007995

PATIENT
  Sex: Female

DRUGS (1)
  1. HUMAN NORMAL IMMUNOGLOBULIN; LIQUID 20 [Suspect]
     Active Substance: HUMAN IMMUNOGLOBULIN G
     Indication: IMMUNODEFICIENCY COMMON VARIABLE
     Route: 065

REACTIONS (12)
  - Pneumonia [Unknown]
  - Degenerative bone disease [Unknown]
  - Intervertebral disc protrusion [Unknown]
  - Asthma [Unknown]
  - Inability to afford medication [Unknown]
  - Aspergillus infection [Unknown]
  - Asthenia [Unknown]
  - Cataract [Unknown]
  - Back disorder [Unknown]
  - Abdominal discomfort [Unknown]
  - Osteoporosis [Unknown]
  - Osteoarthritis [Unknown]

NARRATIVE: CASE EVENT DATE: 2013
